FAERS Safety Report 23171093 (Version 1)
Quarter: 2023Q4

REPORT INFORMATION
  Report Type: Spontaneous
  Country: US (occurrence: None)
  Receive Date: 20231110
  Receipt Date: 20231110
  Transmission Date: 20240110
  Serious: Yes (Hospitalization)
  Sender: FDA-Public Use
  Company Number: None

PATIENT
  Sex: Male

DRUGS (2)
  1. ACTEMRA ACTPEN [Suspect]
     Active Substance: TOCILIZUMAB
     Indication: Psoriasis
     Dosage: OTHER QUANTITY : 162 MG/0.9ML;?FREQUENCY : WEEKLY;?
     Route: 058
     Dates: start: 20230607
  2. ACTEMRA ACTPEN [Suspect]
     Active Substance: TOCILIZUMAB
     Dosage: OTHER QUANTITY : 0.9 ML (162MG TOT);?FREQUENCY : WEEKLY;?
     Route: 058

REACTIONS (1)
  - Drug effect less than expected [None]
